FAERS Safety Report 9619636 (Version 2)
Quarter: 2014Q1

REPORT INFORMATION
  Report Type: Report from Study
  Country: CA (occurrence: CA)
  Receive Date: 20131014
  Receipt Date: 20140107
  Transmission Date: 20141002
  Serious: Yes (Hospitalization)
  Sender: FDA-Public Use
  Company Number: PHHY2013CA114392

PATIENT
  Age: 54 Year
  Sex: Male

DRUGS (4)
  1. SANDOSTATIN LAR [Suspect]
     Indication: ACROMEGALY
     Dosage: 20 MG, EVERY 4 WEEKS
     Route: 030
     Dates: start: 20111101
  2. AMIODARONE [Concomitant]
     Dosage: UNK UKN, UNK
     Dates: end: 201307
  3. MAVIK [Concomitant]
     Dosage: 1 DF, DAILY
  4. TOLOXIN//DIGOXIN [Concomitant]
     Dosage: 1 DF, DAILY

REACTIONS (2)
  - Syncope [Recovered/Resolved]
  - Tachycardia [Unknown]
